FAERS Safety Report 11873693 (Version 2)
Quarter: 2016Q1

REPORT INFORMATION
  Report Type: Report from Study
  Country: BR (occurrence: BR)
  Receive Date: 20151228
  Receipt Date: 20160108
  Transmission Date: 20160526
  Serious: Yes (Other)
  Sender: FDA-Public Use
  Company Number: PHHY2015BR168147

PATIENT
  Age: 52 Year
  Sex: Female
  Weight: 71 kg

DRUGS (2)
  1. DIOVAN AMLO FIX [Suspect]
     Active Substance: AMLODIPINE\VALSARTAN
     Indication: HYPERTENSION
     Dosage: VALSARTAN 320 MG AND AMLODIPINE 10 MG, QD
     Route: 048
     Dates: end: 2011
  2. DIOVAN AMLO FIX [Suspect]
     Active Substance: AMLODIPINE\VALSARTAN
     Dosage: VALSARTAN 320 MG AND AMLODIPINE 5 MG
     Route: 048
     Dates: start: 2011

REACTIONS (5)
  - Diabetes mellitus [Recovering/Resolving]
  - Visual impairment [Recovering/Resolving]
  - Renal neoplasm [Recovering/Resolving]
  - Myocardial infarction [Recovering/Resolving]
  - Weight decreased [Recovering/Resolving]

NARRATIVE: CASE EVENT DATE: 2006
